FAERS Safety Report 4423650-5 (Version None)
Quarter: 2004Q3

REPORT INFORMATION
  Report Type: 
  Country: None (occurrence: None)
  Receive Date: 20040805
  Receipt Date: 20040720
  Transmission Date: 20050211
  Serious: Yes (Other)
  Sender: FDA-Public Use
  Company Number: 700218

PATIENT
  Age: 76 Year
  Sex: Female

DRUGS (2)
  1. EXTRANEAL [Suspect]
     Indication: PERITONEAL DIALYSIS
     Dosage: 1.5 L; QD INTRAPERITONEAL
     Route: 033
  2. DIANEAL [Concomitant]

REACTIONS (1)
  - HYPOVENTILATION [None]
